FAERS Safety Report 6061704-0 (Version None)
Quarter: 2009Q1

REPORT INFORMATION
  Report Type: 
  Country: None (occurrence: None)
  Receive Date: 20090202
  Receipt Date: 20090123
  Transmission Date: 20090719
  Serious: Yes (Hospitalization, Other)
  Sender: FDA-Public Use
  Company Number: JP-PFIZER INC-2008070372

PATIENT

DRUGS (8)
  1. CELECOX [Suspect]
     Indication: RHEUMATOID ARTHRITIS
     Dosage: 200 UNK, UNK
     Route: 048
     Dates: start: 20071210
  2. AZULFIDINE EN-TABS [Concomitant]
     Dosage: 500 MG, 1X/DAY
     Route: 048
     Dates: start: 20080123
  3. ENALAPRIL MALEATE [Concomitant]
     Dosage: 5 MG, 2X/DAY
     Route: 048
  4. ACTONEL [Concomitant]
     Dosage: 25 MG, 1X/DAY
     Dates: start: 20071217
  5. PREDNISOLONE [Concomitant]
     Dosage: 5 MG, 1X/DAY
     Route: 048
     Dates: start: 20071217
  6. ATENOLOL [Concomitant]
     Dosage: 50 MG, 1X/DAY
     Route: 048
     Dates: start: 20080220
  7. PARIET [Concomitant]
     Dosage: 10 MG, 1X/DAY
     Route: 048
     Dates: start: 20071227
  8. TRICHLORMETHIAZIDE [Concomitant]
     Dosage: 2 MG, 1X/DAY
     Route: 048
     Dates: start: 20080220

REACTIONS (2)
  - AORTIC ANEURYSM [None]
  - REFLUX OESOPHAGITIS [None]
